FAERS Safety Report 8274395-5 (Version None)
Quarter: 2012Q1

REPORT INFORMATION
  Report Type: 
  Country: None (occurrence: None)
  Receive Date: 20120309
  Receipt Date: 20110421
  Transmission Date: 20120608
  Serious: Yes (Other)
  Sender: FDA-Public Use
  Company Number: PHHY2011US34129

PATIENT
  Sex: Female

DRUGS (6)
  1. ISOBAR (METHYLCLOTHIAZIDE, TRIAMTERENE) [Concomitant]
  2. TEKTURNA HCT [Suspect]
     Indication: HYPERTENSION
     Dosage: 300 MG ALIS AND 12.5 MG HCT, ONCE DAILY IN THE MORNING, ORAL
     Route: 048
  3. VALTURNA [Suspect]
     Indication: HYPERTENSION
     Dosage: 300 MG ALIS AND 320 MG VALS
     Dates: start: 20110420
  4. ANTIHYPERTENSIVE DRUGS (NO INGREDIENTS/SUBSTANCES) [Suspect]
     Indication: HYPERTENSION
  5. HYDRALAZINE HCL [Concomitant]
  6. EXTRA STRENGTH TYLENOL [Suspect]
     Indication: HEADACHE

REACTIONS (5)
  - HEART RATE DECREASED [None]
  - BLOOD PRESSURE INCREASED [None]
  - DRUG INEFFECTIVE [None]
  - HEADACHE [None]
  - BLOOD PRESSURE FLUCTUATION [None]
